FAERS Safety Report 5679574-9 (Version None)
Quarter: 2008Q1

REPORT INFORMATION
  Report Type: 
  Country: None (occurrence: None)
  Receive Date: 20080325
  Receipt Date: 20080313
  Transmission Date: 20080703
  Serious: Yes (Life-Threatening, Hospitalization)
  Sender: FDA-Public Use
  Company Number: JP-PFIZER INC-2008024955

PATIENT
  Sex: Male

DRUGS (10)
  1. SULPERAZON [Suspect]
     Indication: CHOLANGITIS SCLEROSING
     Route: 042
     Dates: start: 20070227, end: 20070302
  2. SULPERAZON [Suspect]
     Route: 042
     Dates: start: 20080304, end: 20080304
  3. ROCEPHIN [Concomitant]
  4. URSO 250 [Concomitant]
     Route: 048
  5. LACTEC [Concomitant]
  6. MESALAMINE [Concomitant]
     Route: 048
  7. BLOPRESS [Concomitant]
     Route: 048
  8. AMLODIN [Concomitant]
     Route: 048
  9. OMEPRAL [Concomitant]
     Route: 048
     Dates: start: 20071023
  10. ZYRTEC [Concomitant]
     Route: 048
     Dates: start: 20050501

REACTIONS (5)
  - MUSCULOSKELETAL STIFFNESS [None]
  - SALIVARY HYPERSECRETION [None]
  - SHOCK [None]
  - SKIN HAEMORRHAGE [None]
  - VOMITING [None]
